FAERS Safety Report 6480045-0 (Version None)
Quarter: 2009Q4

REPORT INFORMATION
  Report Type: 
  Country: None (occurrence: None)
  Receive Date: 20091119
  Receipt Date: 20091014
  Transmission Date: 20100525
  Serious: No
  Sender: FDA-Public Use
  Company Number: WAES 0910USA01770

PATIENT
  Age: 58 Year
  Sex: Female

DRUGS (6)
  1. JANUVIA [Suspect]
     Indication: DIABETES MELLITUS
     Dosage: 100 MG/DAILY/PO : PO
     Route: 048
     Dates: start: 20080101, end: 20090614
  2. JANUVIA [Suspect]
     Indication: DIABETES MELLITUS
     Dosage: 100 MG/DAILY/PO : PO
     Route: 048
     Dates: start: 20090601
  3. XANAX [Concomitant]
  4. ZOLOFT [Concomitant]
  5. GLYBURIDE [Concomitant]
  6. METFORMIN HCL [Concomitant]

REACTIONS (3)
  - ALOPECIA [None]
  - DRUG ADMINISTRATION ERROR [None]
  - HEADACHE [None]
